FAERS Safety Report 8509138-0 (Version None)
Quarter: 2012Q3

REPORT INFORMATION
  Report Type: 
  Country: None (occurrence: None)
  Receive Date: 20120713
  Receipt Date: 20120706
  Transmission Date: 20120928
  Serious: Yes (Hospitalization, Disabling)
  Sender: FDA-Public Use
  Company Number: GB-GLAXOSMITHKLINE-B0759341A

PATIENT
  Age: 76 Year
  Sex: Male
  Weight: 120 kg

DRUGS (33)
  1. VITAMIN B COMPLEX CAP [Concomitant]
     Dates: start: 20120305
  2. CHLORHEXIDINE GLUCONATE [Concomitant]
     Dates: start: 20110714, end: 20110728
  3. FUROSEMIDE [Concomitant]
     Dates: start: 20110831
  4. ROPINIROLE [Suspect]
     Dates: start: 20110801
  5. RAMIPRIL [Concomitant]
     Dates: start: 20110824
  6. ACETAMINOPHEN AND CODEINE PHOSPHATE [Concomitant]
     Dates: start: 20111017
  7. FLUTICASONE PROPIONATE [Concomitant]
     Dates: start: 20120319, end: 20120418
  8. CARBOCISTEINE [Concomitant]
     Dates: start: 20110627, end: 20110727
  9. SOLIFENACIN SUCCINATE [Concomitant]
     Dates: start: 20110824
  10. DEPO-MEDROL [Concomitant]
     Dates: start: 20110831, end: 20110901
  11. TAMSULOSIN HCL [Concomitant]
     Dates: start: 20111010
  12. CETIRIZINE [Concomitant]
     Dates: start: 20110509, end: 20110801
  13. HYDROMOL CREAM [Concomitant]
     Dates: start: 20110824, end: 20110903
  14. BUDESONIDE [Concomitant]
     Dates: start: 20110831, end: 20110901
  15. PANTOPRAZOLE [Concomitant]
     Dates: start: 20110905
  16. HYOSCINE HYDROBROMIDE [Concomitant]
     Dates: start: 20110912
  17. DOXAZOSIN MESYLATE [Concomitant]
     Dates: start: 20110926
  18. CARBOCISTEINE [Concomitant]
     Dates: start: 20111010
  19. LACTULOSE [Concomitant]
     Dates: start: 20111017
  20. SENNA-MINT WAF [Concomitant]
     Dates: start: 20111017
  21. SOLIFENACIN SUCCINATE [Concomitant]
     Dates: start: 20110509, end: 20110801
  22. ORLISTAT [Concomitant]
     Dates: start: 20110711, end: 20110808
  23. ALBUTEROL SULATE [Concomitant]
     Dates: start: 20110711, end: 20110928
  24. INDACATEROL [Concomitant]
     Dates: start: 20110801, end: 20110930
  25. ORLISTAT [Concomitant]
     Dates: start: 20110905, end: 20111003
  26. SILVER SULFADIAZINE [Concomitant]
     Dates: start: 20120402, end: 20120416
  27. AMOXICILLIN [Concomitant]
     Dates: start: 20110916, end: 20110921
  28. FLUCLOXACILLIN [Concomitant]
     Dates: start: 20111003
  29. PREGABALIN [Concomitant]
     Dates: start: 20120323
  30. QUININE SULFATE [Concomitant]
     Dates: start: 20110801, end: 20110928
  31. TAMSULOSIN HCL [Concomitant]
     Dates: start: 20110801, end: 20110829
  32. CARBOCISTEINE [Concomitant]
     Dates: start: 20110824, end: 20110923
  33. IBUPROFEN [Concomitant]
     Dates: start: 20120618

REACTIONS (2)
  - MEMORY IMPAIRMENT [None]
  - TARDIVE DYSKINESIA [None]
